FAERS Safety Report 4514460-9 (Version None)
Quarter: 2004Q4

REPORT INFORMATION
  Report Type: 
  Country: None (occurrence: None)
  Receive Date: 20040928
  Receipt Date: 20040719
  Transmission Date: 20050328
  Serious: No
  Sender: FDA-Public Use
  Company Number: 04P-163-0267386-00

PATIENT
  Age: 16 Year
  Sex: Female
  Weight: 56.6996 kg

DRUGS (2)
  1. HUMIRA [Suspect]
     Indication: CROHN'S DISEASE
     Dosage: 40 MG, 1 IN 2 WK, SUBCUTANEOUS
     Route: 058
     Dates: start: 20030801
  2. HUMIRA [Suspect]
     Indication: OSTEOARTHRITIS
     Dosage: 40 MG, 1 IN 2 WK, SUBCUTANEOUS
     Route: 058
     Dates: start: 20030801

REACTIONS (5)
  - DYSPHAGIA [None]
  - INJECTION SITE PAIN [None]
  - MONONUCLEOSIS SYNDROME [None]
  - PAIN [None]
  - URINARY TRACT INFECTION [None]
